FAERS Safety Report 16316384 (Version 1)
Quarter: 2019Q2

REPORT INFORMATION
  Report Type: Spontaneous
  Country: BE (occurrence: BE)
  Receive Date: 20190515
  Receipt Date: 20190515
  Transmission Date: 20190711
  Serious: Yes (Death, Life-Threatening, Hospitalization, Other)
  Sender: FDA-Public Use
  Company Number: BE-009507513-1905BEL000729

PATIENT
  Age: 77 Year
  Sex: Female
  Weight: 53 kg

DRUGS (1)
  1. KEYTRUDA [Suspect]
     Active Substance: PEMBROLIZUMAB
     Indication: NON-SMALL CELL LUNG CANCER
     Dosage: 200 MILLIGRAM, 3 WEEKS (6 CYCLES)
     Dates: start: 20181102, end: 20190220

REACTIONS (6)
  - Interstitial lung disease [Fatal]
  - Acute respiratory failure [Fatal]
  - Hyperthyroidism [Unknown]
  - Malignant neoplasm progression [Unknown]
  - Acute respiratory failure [Unknown]
  - Psoriasis [Recovered/Resolved]

NARRATIVE: CASE EVENT DATE: 2018
